FAERS Safety Report 21678438 (Version 1)
Quarter: 2022Q4

REPORT INFORMATION
  Report Type: Spontaneous
  Country: US (occurrence: US)
  Receive Date: 20221203
  Receipt Date: 20221203
  Transmission Date: 20230113
  Serious: Yes (Other)
  Sender: FDA-Public Use
  Company Number: US-TEVA-2022-US-2831738

PATIENT
  Age: 67 Year
  Sex: Female

DRUGS (1)
  1. CLOZAPINE [Suspect]
     Active Substance: CLOZAPINE
     Indication: Schizophrenia
     Dosage: 250 MILLIGRAM DAILY; 50 MG IN THE MORNING AND 200 MG AT NIGHT DAILY
     Route: 065

REACTIONS (4)
  - Colon cancer [Unknown]
  - Diabetes mellitus [Unknown]
  - Bedridden [Unknown]
  - Living in residential institution [Unknown]
